FAERS Safety Report 21052065 (Version 3)
Quarter: 2023Q2

REPORT INFORMATION
  Report Type: Report from Study
  Country: CN (occurrence: CN)
  Receive Date: 20220707
  Receipt Date: 20230412
  Transmission Date: 20230721
  Serious: Yes (Hospitalization)
  Sender: FDA-Public Use
  Company Number: CN-NOVARTISPH-NVSC2022CN152614

PATIENT
  Age: 65 Year
  Sex: Male
  Weight: 77 kg

DRUGS (9)
  1. COSENTYX [Suspect]
     Active Substance: SECUKINUMAB
     Indication: Psoriasis
     Dosage: 300 MG
     Route: 058
     Dates: start: 20220324, end: 20220509
  2. CYCLOSPORINE [Concomitant]
     Active Substance: CYCLOSPORINE
     Indication: Autoimmune disorder
     Dosage: 75 MG
     Route: 065
     Dates: start: 20220510, end: 20220516
  3. PROMETHAZINE [Concomitant]
     Active Substance: PROMETHAZINE HYDROCHLORIDE
     Indication: Antiallergic therapy
     Dosage: 25 MG
     Route: 065
     Dates: start: 20220510, end: 20220516
  4. VITAMIN C [Concomitant]
     Active Substance: ASCORBIC ACID
     Indication: Antiallergic therapy
     Dosage: 2 G (NEEDLE)
     Route: 065
     Dates: start: 20220510, end: 20220516
  5. CALCIUM GLUCONATE [Concomitant]
     Active Substance: CALCIUM GLUCONATE
     Indication: Antiallergic therapy
     Dosage: 10 ML (NEEDLE)
     Route: 065
     Dates: start: 20220510, end: 20220516
  6. SODIUM THIOSULFATE [Concomitant]
     Active Substance: SODIUM THIOSULFATE
     Indication: Antiallergic therapy
     Dosage: 0.64 G (NEEDLE)
     Route: 065
     Dates: start: 20220510, end: 20220516
  7. POTASSIUM CHLORIDE [Concomitant]
     Active Substance: POTASSIUM CHLORIDE
     Indication: Mineral supplementation
     Dosage: 1.57 G
     Route: 065
     Dates: start: 20220510, end: 20220516
  8. LORATADINE [Concomitant]
     Active Substance: LORATADINE
     Indication: Antiallergic therapy
     Dosage: 10 MG
     Route: 065
     Dates: start: 20220510, end: 20220516
  9. FLUTICASONE PROPIONATE [Concomitant]
     Active Substance: FLUTICASONE PROPIONATE
     Indication: Antiallergic therapy
     Dosage: 2 G
     Route: 065
     Dates: start: 20220510, end: 20220516

REACTIONS (9)
  - Eczema [Recovering/Resolving]
  - Pruritus [Recovering/Resolving]
  - Rash macular [Recovering/Resolving]
  - Papule [Recovering/Resolving]
  - Scab [Recovering/Resolving]
  - Rash [Recovering/Resolving]
  - Skin haemorrhage [Recovering/Resolving]
  - Discomfort [Recovered/Resolved]
  - Sleep disorder [Recovering/Resolving]

NARRATIVE: CASE EVENT DATE: 20220510
